FAERS Safety Report 9399314 (Version 1)
Quarter: 2013Q3

REPORT INFORMATION
  Report Type: Spontaneous
  Country: IT (occurrence: None)
  Receive Date: 20130710
  Receipt Date: 20130710
  Transmission Date: 20140515
  Serious: Yes (Hospitalization)
  Sender: FDA-Public Use
  Company Number: 1307ITA001479

PATIENT
  Age: 31 Year
  Sex: Female
  Weight: 63 kg

DRUGS (1)
  1. CEDAX [Suspect]
     Indication: TONSILLITIS BACTERIAL
     Route: 048
     Dates: start: 20130529, end: 20130530

REACTIONS (1)
  - Asthma [None]
